FAERS Safety Report 5660361-2 (Version None)
Quarter: 2008Q1

REPORT INFORMATION
  Report Type: 
  Country: None (occurrence: None)
  Receive Date: 20080311
  Receipt Date: 20071004
  Transmission Date: 20080703
  Serious: No
  Sender: FDA-Public Use
  Company Number: US-BAYER-200713255BCC

PATIENT
  Age: 78 Year
  Sex: Male
  Weight: 77 kg

DRUGS (4)
  1. ALEVE [Suspect]
     Indication: PYREXIA
     Dosage: TOTAL DAILY DOSE: 440 MG  UNIT DOSE: 220 MG
     Route: 048
     Dates: start: 20071003
  2. ANACIN [Concomitant]
  3. ALPRAZOLAM [Concomitant]
  4. PAXIL CR [Concomitant]

REACTIONS (1)
  - CONSTIPATION [None]
